FAERS Safety Report 5306989-0 (Version None)
Quarter: 2007Q2

REPORT INFORMATION
  Report Type: 
  Country: None (occurrence: None)
  Receive Date: 20070419
  Receipt Date: 20070412
  Transmission Date: 20071010
  Serious: No
  Sender: FDA-Public Use
  Company Number: JPI-P-000940

PATIENT
  Age: 51 Year
  Sex: Female
  Weight: 136.0791 kg

DRUGS (7)
  1. XYREM [Suspect]
     Indication: CATAPLEXY
     Dosage: (4.5 GRAMS OR 5.0 GRAMS TWICE A NIGHT), ORAL
     Route: 048
     Dates: start: 20040311
  2. XYREM [Suspect]
     Indication: NIGHTMARE
     Dosage: (4.5 GRAMS OR 5.0 GRAMS TWICE A NIGHT), ORAL
     Route: 048
     Dates: start: 20040311
  3. XYREM [Suspect]
     Indication: SENSORY DISTURBANCE
     Dosage: (4.5 GRAMS OR 5.0 GRAMS TWICE A NIGHT), ORAL
     Route: 048
     Dates: start: 20040311
  4. XANAX [Concomitant]
  5. METHADONE HCL [Concomitant]
  6. OXYCONTIN [Concomitant]
  7. PROVIGIL [Concomitant]

REACTIONS (4)
  - FALL [None]
  - HYPNAGOGIC HALLUCINATION [None]
  - INSOMNIA [None]
  - TREATMENT NONCOMPLIANCE [None]
